FAERS Safety Report 6475552-0 (Version None)
Quarter: 2009Q4

REPORT INFORMATION
  Report Type: 
  Country: None (occurrence: None)
  Receive Date: 20091204
  Receipt Date: 20091124
  Transmission Date: 20100525
  Serious: Yes (Disabling, Other)
  Sender: FDA-Public Use
  Company Number: US-PFIZER INC-2009305091

PATIENT
  Sex: Female
  Weight: 68.038 kg

DRUGS (5)
  1. LIPITOR [Suspect]
     Dosage: 10 MG, 1X/DAY
     Route: 048
     Dates: end: 20090701
  2. ZETIA [Concomitant]
  3. FAMOTIDINE [Concomitant]
  4. GABAPENTIN [Concomitant]
  5. NORVASC [Concomitant]

REACTIONS (6)
  - BLOOD URINE PRESENT [None]
  - DIABETES MELLITUS [None]
  - HEPATIC CIRRHOSIS [None]
  - MUSCULAR WEAKNESS [None]
  - MYOCARDIAL INFARCTION [None]
  - RENAL FAILURE [None]
